FAERS Safety Report 9495280 (Version 1)
Quarter: 2013Q3

REPORT INFORMATION
  Report Type: Spontaneous
  Country: CA (occurrence: None)
  Receive Date: 20130828
  Receipt Date: 20130828
  Transmission Date: 20140515
  Serious: Yes (Other)
  Sender: FDA-Public Use
  Company Number: NPIL/ISO/H/2013/57

PATIENT
  Age: 57 Year
  Sex: Female
  Weight: 91 kg

DRUGS (13)
  1. ISOFLURANE [Suspect]
     Indication: ANAESTHESIA
     Route: 055
  2. PHENYTOIN [Concomitant]
  3. RAMIPRIL [Concomitant]
  4. AMLODIPINE [Concomitant]
  5. EZETIMIBE [Concomitant]
  6. ATORVASTATIN [Concomitant]
  7. GABAPENTIN [Concomitant]
  8. INSULIN [Concomitant]
  9. ACETYLSALICYLIC ACID [Concomitant]
  10. REMIFENTANIL [Concomitant]
  11. PROPOFOL [Concomitant]
  12. ROCURONIUM [Concomitant]
  13. MANNITOL [Concomitant]

REACTIONS (4)
  - Hemiparesis [None]
  - Pain in extremity [None]
  - Cerebral ischaemia [None]
  - Myoglobinuria [None]
